FAERS Safety Report 10877125 (Version 5)
Quarter: 2017Q2

REPORT INFORMATION
  Report Type: Spontaneous
  Country: US (occurrence: US)
  Receive Date: 20150302
  Receipt Date: 20170427
  Transmission Date: 20170829
  Serious: Yes (Other)
  Sender: FDA-Public Use
  Company Number: US-JNJFOC-20150218313

PATIENT
  Age: 16 Year
  Sex: Male

DRUGS (3)
  1. RISPERDAL M-TAB [Suspect]
     Active Substance: RISPERIDONE
     Indication: PSYCHOTIC DISORDER
     Dosage: AT BEDTIME IN VARYING DOSES OF 1 MG, 2 MG, 3 MG, 4 MG
     Route: 048
  2. RISPERDAL M-TAB [Suspect]
     Active Substance: RISPERIDONE
     Indication: SCHIZOPHRENIA
     Dosage: AT BEDTIME IN VARYING DOSES OF 1 MG, 2 MG, 3 MG, 4 MG
     Route: 048
  3. RISPERDAL [Suspect]
     Active Substance: RISPERIDONE
     Indication: PSYCHOTIC DISORDER
     Dosage: VARYING DOSES OF 1,3,4MG.
     Route: 048
     Dates: start: 2011, end: 2013

REACTIONS (4)
  - Tardive dyskinesia [Unknown]
  - Gynaecomastia [Recovering/Resolving]
  - Abnormal weight gain [Unknown]
  - Inappropriate schedule of drug administration [Unknown]

NARRATIVE: CASE EVENT DATE: 20111121
